FAERS Safety Report 9009818 (Version 6)
Quarter: 2014Q3

REPORT INFORMATION
  Report Type: Report from Study
  Country: FR (occurrence: FR)
  Receive Date: 20130110
  Receipt Date: 20140903
  Transmission Date: 20150326
  Serious: Yes (Hospitalization)
  Sender: FDA-Public Use
  Company Number: FR-BAYER-2013-001301

PATIENT
  Age: 51 Year
  Sex: Female
  Weight: 80 kg

DRUGS (13)
  1. REGORAFENIB [Suspect]
     Active Substance: REGORAFENIB
     Indication: COLORECTAL CANCER METASTATIC
     Dosage: 40 MG X 4 = 160 MG
     Route: 048
     Dates: start: 20121101, end: 20121121
  2. ZOLPIDEM [Concomitant]
     Active Substance: ZOLPIDEM\ZOLPIDEM TARTRATE
     Indication: INSOMNIA
     Dosage: DAILY DOSE 10 MG
     Route: 048
     Dates: start: 20121026, end: 20130131
  3. NAPROSYN [Concomitant]
     Active Substance: NAPROXEN
     Indication: PAIN
     Dosage: DAILY DOSE 1000 MG
     Route: 048
     Dates: start: 20121026, end: 20130131
  4. XYZALL [Concomitant]
     Active Substance: LEVOCETIRIZINE DIHYDROCHLORIDE
     Indication: ANTIALLERGIC THERAPY
     Dosage: 1 TABLET
     Route: 048
     Dates: start: 20121026, end: 20130131
  5. REGORAFENIB [Suspect]
     Active Substance: REGORAFENIB
     Indication: COLORECTAL CANCER METASTATIC
     Dosage: 40 MG X 4 = 160 MG
     Route: 048
     Dates: start: 20121101, end: 20121121
  6. INIPOMP [Concomitant]
     Active Substance: PANTOPRAZOLE SODIUM
     Indication: GASTROOESOPHAGEAL REFLUX DISEASE
     Dosage: DAILY DOSE 20 MG
     Route: 048
     Dates: start: 20121026, end: 20130131
  7. REGORAFENIB [Suspect]
     Active Substance: REGORAFENIB
     Indication: COLORECTAL CANCER METASTATIC
     Dosage: 40 MG, TID
     Route: 048
     Dates: start: 20121129, end: 20121219
  8. OXYCONTIN [Concomitant]
     Active Substance: OXYCODONE HYDROCHLORIDE
     Indication: PAIN
     Dosage: DAILY DOSE 20 MG
     Route: 048
     Dates: start: 20121026, end: 20130131
  9. OXYNORM [Concomitant]
     Active Substance: OXYCODONE HYDROCHLORIDE
     Indication: PAIN
     Dosage: DAILY DOSE 150 MG
     Route: 048
     Dates: start: 20121026, end: 20130131
  10. REGORAFENIB [Suspect]
     Active Substance: REGORAFENIB
     Indication: COLORECTAL CANCER METASTATIC
     Dosage: 40 MG, TID
     Route: 048
     Dates: start: 20121129, end: 20121219
  11. REGORAFENIB [Suspect]
     Active Substance: REGORAFENIB
     Indication: COLORECTAL CANCER METASTATIC
     Dosage: 40 MG, TID
     Route: 048
     Dates: start: 20121129, end: 20121219
  12. REGORAFENIB [Suspect]
     Active Substance: REGORAFENIB
     Indication: COLORECTAL CANCER METASTATIC
     Dosage: 40 MG X 4 = 160 MG
     Route: 048
     Dates: start: 20121101, end: 20121121
  13. PRIMPERAN [Concomitant]
     Active Substance: METOCLOPRAMIDE HYDROCHLORIDE
     Indication: NAUSEA
     Dosage: UNK
     Dates: start: 20130106, end: 20130106

REACTIONS (1)
  - Pancreatitis [Recovered/Resolved]

NARRATIVE: CASE EVENT DATE: 20121231
